FAERS Safety Report 7022646-7 (Version None)
Quarter: 2010Q3

REPORT INFORMATION
  Report Type: 
  Country: None (occurrence: None)
  Receive Date: 20100916
  Receipt Date: 20100528
  Transmission Date: 20110219
  Serious: No
  Sender: FDA-Public Use
  Company Number: DKLU1062723

PATIENT
  Age: 52 Year
  Sex: Male

DRUGS (3)
  1. SABRIL [Suspect]
     Indication: CONVULSION
     Dosage: 250 MG MILLIGRAM(S), 2 IN 1 D, ORAL
     Route: 048
     Dates: start: 20100301
  2. ZONEGRAN [Concomitant]
  3. BENZODIAZAPENE (BENZODIAZEPENE DERIVATIVES) [Concomitant]

REACTIONS (1)
  - TREMOR [None]
